FAERS Safety Report 25094380 (Version 1)
Quarter: 2025Q1

REPORT INFORMATION
  Report Type: Spontaneous
  Country: US (occurrence: None)
  Receive Date: 20250318
  Receipt Date: 20250318
  Transmission Date: 20250409
  Serious: Yes (Other)
  Sender: FDA-CTU
  Company Number: None

PATIENT
  Age: 78 Year
  Sex: Female
  Weight: 52.65 kg

DRUGS (10)
  1. GADOLINIUM [Suspect]
     Active Substance: GADOLINIUM
     Indication: Scan with contrast
  2. PROLIA [Concomitant]
     Active Substance: DENOSUMAB
  3. ASPIRIN [Concomitant]
     Active Substance: ASPIRIN
  4. LOSARTAN [Concomitant]
     Active Substance: LOSARTAN
  5. 2 pipeline stents [Concomitant]
  6. B-12 lozenge [Concomitant]
  7. Bone-Up calcium [Concomitant]
  8. UNSPECIFIED INGREDIENT [Concomitant]
     Active Substance: UNSPECIFIED INGREDIENT
  9. apple cider vinegar capsule [Concomitant]
  10. Kombucha tea [Concomitant]

REACTIONS (2)
  - Diarrhoea [None]
  - Malaise [None]

NARRATIVE: CASE EVENT DATE: 20250318
